FAERS Safety Report 7262220-0 (Version None)
Quarter: 2011Q1

REPORT INFORMATION
  Report Type: 
  Country: None (occurrence: None)
  Receive Date: 20110130
  Receipt Date: 20101114
  Transmission Date: 20110831
  Serious: No
  Sender: FDA-Public Use
  Company Number: US-ABBOTT-10P-163-0685447-00

PATIENT
  Age: 61 Year
  Sex: Female

DRUGS (13)
  1. CRESTOR [Concomitant]
     Indication: BLOOD CHOLESTEROL
  2. HUMIRA [Suspect]
     Indication: PSORIASIS
     Dosage: AFTER INITIAL LOADING DOSE
     Dates: start: 20101106
  3. XANAX [Concomitant]
     Indication: ANXIETY
     Route: 048
  4. WELLBUTRIN [Concomitant]
     Indication: ANXIETY
     Route: 048
  5. MAXZIDE [Concomitant]
     Indication: HYPERTENSION
     Route: 048
  6. NEXIUM [Concomitant]
     Indication: GASTRIC PH DECREASED
     Route: 048
  7. XANAX [Concomitant]
     Indication: PANIC ATTACK
  8. BENICAR [Concomitant]
     Indication: HYPERTENSION
     Route: 048
  9. ASPIRIN [Concomitant]
     Indication: BLOOD PRESSURE
     Route: 048
  10. WELLBUTRIN [Concomitant]
     Indication: DEPRESSION
  11. PLAVIX [Concomitant]
     Indication: ANTICOAGULANT THERAPY
     Route: 048
  12. SINGULAIR [Concomitant]
     Indication: HYPERSENSITIVITY
  13. SYNTHROID [Concomitant]
     Indication: HYPOTHYROIDISM

REACTIONS (3)
  - INCORRECT DOSE ADMINISTERED [None]
  - INJECTION SITE PAIN [None]
  - WRONG TECHNIQUE IN DRUG USAGE PROCESS [None]
